FAERS Safety Report 8436502-0 (Version None)
Quarter: 2012Q2

REPORT INFORMATION
  Report Type: 
  Country: None (occurrence: None)
  Receive Date: 20120614
  Receipt Date: 20110906
  Transmission Date: 20120825
  Serious: Yes (Death)
  Sender: FDA-Public Use
  Company Number: US-GLAXOSMITHKLINE-A0943621A

PATIENT
  Sex: Male

DRUGS (2)
  1. VOTRIENT [Suspect]
     Indication: RENAL CANCER
     Dosage: 200MG FOUR TIMES PER DAY
     Route: 065
  2. MULTIPLE MEDICATIONS [Concomitant]

REACTIONS (4)
  - FATIGUE [None]
  - VOMITING [None]
  - NAUSEA [None]
  - DEATH [None]
